FAERS Safety Report 9124677 (Version 2)
Quarter: 2013Q1

REPORT INFORMATION
  Report Type: Spontaneous
  Country: GB (occurrence: GB)
  Receive Date: 20130227
  Receipt Date: 20130313
  Transmission Date: 20140127
  Serious: Yes (Hospitalization, Other)
  Sender: FDA-Public Use
  Company Number: GB-ELI_LILLY_AND_COMPANY-GB201302006115

PATIENT
  Sex: Female

DRUGS (3)
  1. HUMALOG LISPRO [Suspect]
     Indication: DIABETES MELLITUS
     Dosage: 10 U, PRN
     Dates: start: 1993
  2. LANTUS [Concomitant]
  3. METFORMIN [Concomitant]
     Dosage: UNK

REACTIONS (6)
  - Pathological fracture [Unknown]
  - Renal failure [Not Recovered/Not Resolved]
  - Coma [Unknown]
  - Hypoglycaemia [Unknown]
  - Memory impairment [Not Recovered/Not Resolved]
  - Incorrect dose administered [Unknown]
